FAERS Safety Report 4891539-3 (Version None)
Quarter: 2006Q1

REPORT INFORMATION
  Report Type: 
  Country: None (occurrence: None)
  Receive Date: 20060125
  Receipt Date: 20051017
  Transmission Date: 20060701
  Serious: Yes (Hospitalization, Disabling)
  Sender: FDA-Public Use
  Company Number: US-MERCK-0510USA07790

PATIENT
  Age: 56 Year
  Sex: Male
  Weight: 123 kg

DRUGS (9)
  1. VIOXX [Suspect]
     Indication: ARTHRALGIA
     Route: 048
  2. VIOXX [Suspect]
     Route: 048
  3. GLUCOPHAGE [Concomitant]
     Route: 065
  4. SYNTHROID [Concomitant]
     Route: 065
  5. PROZAC [Concomitant]
     Route: 065
  6. NORVASC [Concomitant]
     Route: 065
  7. VALIUM [Concomitant]
     Route: 065
  8. HYDROCHLOROTHIAZIDE [Concomitant]
     Route: 065
  9. PHENERGAN [Concomitant]
     Route: 065

REACTIONS (8)
  - CEREBELLAR INFARCTION [None]
  - CEREBRAL HAEMORRHAGE [None]
  - CEREBROVASCULAR ACCIDENT [None]
  - CHEST PAIN [None]
  - EXOSTOSIS [None]
  - GOITRE [None]
  - INJURY [None]
  - MYOCARDIAL INFARCTION [None]
